FAERS Safety Report 10536797 (Version 1)
Quarter: 2014Q4

REPORT INFORMATION
  Report Type: Spontaneous
  Country: US (occurrence: US)
  Receive Date: 20141022
  Receipt Date: 20141022
  Transmission Date: 20150529
  Serious: No
  Sender: FDA-Public Use
  Company Number: US-RECKITT BENCKISER PHARMACEUTICAL, INC-RB-70377-2014

PATIENT

DRUGS (4)
  1. BUPRENORPHINE/NALOXONE GENERIC [Suspect]
     Active Substance: BUPRENORPHINE\NALOXONE
     Indication: DRUG DEPENDENCE
     Dosage: UNK
     Route: 060
     Dates: end: 2014
  2. SUBOXONE [Suspect]
     Active Substance: BUPRENORPHINE HYDROCHLORIDE\NALOXONE HYDROCHLORIDE
     Indication: DRUG DEPENDENCE
     Dosage: UNK, QD
     Route: 060
     Dates: start: 2012
  3. BUPRENORPHINE/NALOXONE GENERIC [Suspect]
     Active Substance: BUPRENORPHINE\NALOXONE
     Dosage: 8 MG, QD
     Route: 060
  4. BUPRENORPHINE/NALOXONE GENERIC [Suspect]
     Active Substance: BUPRENORPHINE\NALOXONE
     Dosage: 24 MG, QD
     Route: 060

REACTIONS (10)
  - Depression [Recovered/Resolved]
  - Headache [Recovered/Resolved]
  - Vomiting [Recovered/Resolved]
  - Paranoia [Recovered/Resolved]
  - Tooth injury [Not Recovered/Not Resolved]
  - Nausea [Recovered/Resolved]
  - Device breakage [Recovered/Resolved]
  - Pre-existing condition improved [Recovered/Resolved]
  - Pain in jaw [Recovered/Resolved]
  - Wrong technique in drug usage process [Recovered/Resolved]

NARRATIVE: CASE EVENT DATE: 2012
